FAERS Safety Report 7543896-7 (Version None)
Quarter: 2011Q2

REPORT INFORMATION
  Report Type: 
  Country: None (occurrence: None)
  Receive Date: 20110613
  Receipt Date: 20110608
  Transmission Date: 20111010
  Serious: Yes (Hospitalization)
  Sender: FDA-Public Use
  Company Number: DE-ABBOTT-11P-062-0731198-00

PATIENT
  Sex: Female
  Weight: 57 kg

DRUGS (6)
  1. CITALOPRAM HYDROBROMIDE [Concomitant]
     Indication: PRODUCT USED FOR UNKNOWN INDICATION
  2. HUMIRA [Suspect]
     Dates: end: 20110420
  3. PANTOPRAZOLE [Concomitant]
     Indication: PRODUCT USED FOR UNKNOWN INDICATION
  4. HUMIRA [Suspect]
     Indication: CROHN'S DISEASE
     Dosage: WEEK 0
     Route: 058
     Dates: start: 20101116, end: 20101116
  5. ARCOXIA [Concomitant]
     Indication: CROHN'S DISEASE
  6. HUMIRA [Suspect]
     Dosage: WEEK 2

REACTIONS (1)
  - ENTEROCUTANEOUS FISTULA [None]
